FAERS Safety Report 7324365-6 (Version None)
Quarter: 2011Q1

REPORT INFORMATION
  Report Type: 
  Country: None (occurrence: None)
  Receive Date: 20110203
  Receipt Date: 20100617
  Transmission Date: 20110831
  Serious: Yes (Hospitalization)
  Sender: FDA-Public Use
  Company Number: 012421

PATIENT
  Age: 30 Year
  Sex: Female

DRUGS (2)
  1. ZONEGRAN [Concomitant]
  2. KEPPRA [Suspect]
     Dosage: 1500 MG

REACTIONS (4)
  - ROAD TRAFFIC ACCIDENT [None]
  - GRAND MAL CONVULSION [None]
  - LACERATION [None]
  - BACK PAIN [None]
